FAERS Safety Report 16006111 (Version 3)
Quarter: 2019Q2

REPORT INFORMATION
  Report Type: Spontaneous
  Country: US (occurrence: US)
  Receive Date: 20190226
  Receipt Date: 20190426
  Transmission Date: 20190711
  Serious: Yes (Death)
  Sender: FDA-Public Use
  Company Number: US-ORPHAN EUROPE-2063209

PATIENT
  Age: 17 Year
  Sex: Female

DRUGS (1)
  1. CARBAGLU [Suspect]
     Active Substance: CARGLUMIC ACID
     Indication: HYPERGLYCINAEMIA

REACTIONS (3)
  - Cardiac failure [Fatal]
  - Off label use [Unknown]
  - Sepsis [Fatal]

NARRATIVE: CASE EVENT DATE: 20190217
